FAERS Safety Report 6203221-0 (Version None)
Quarter: 2009Q2

REPORT INFORMATION
  Report Type: 
  Country: None (occurrence: None)
  Receive Date: 20090522
  Receipt Date: 20090522
  Transmission Date: 20091009
  Serious: No
  Sender: FDA-Public Use
  Company Number: None

PATIENT
  Age: 60 Year
  Sex: Male
  Weight: 109.09 kg

DRUGS (1)
  1. NIACIN [Suspect]
     Dosage: 1000 MG EVERY DAY PO
     Route: 048
     Dates: start: 20090320, end: 20090511

REACTIONS (1)
  - GOUT [None]
